FAERS Safety Report 6376259-0 (Version None)
Quarter: 2009Q3

REPORT INFORMATION
  Report Type: 
  Country: None (occurrence: None)
  Receive Date: 20090925
  Receipt Date: 20090916
  Transmission Date: 20100115
  Serious: Yes (Hospitalization)
  Sender: FDA-Public Use
  Company Number: US-BIOGENIDEC-2005BI010547

PATIENT
  Sex: Female

DRUGS (3)
  1. AVONEX [Suspect]
     Indication: MULTIPLE SCLEROSIS
     Route: 030
     Dates: start: 20041001, end: 20050901
  2. AVONEX [Suspect]
     Route: 030
  3. CHEMOTHERAPY (NOS) [Concomitant]
     Indication: COLON CANCER

REACTIONS (2)
  - COLON CANCER [None]
  - RENAL FUNCTION TEST ABNORMAL [None]
